FAERS Safety Report 25046560 (Version 1)
Quarter: 2025Q1

REPORT INFORMATION
  Report Type: Spontaneous
  Country: US (occurrence: None)
  Receive Date: 20250306
  Receipt Date: 20250306
  Transmission Date: 20250409
  Serious: Yes (Hospitalization)
  Sender: FDA-CTU
  Company Number: None

PATIENT
  Sex: Female

DRUGS (11)
  1. NUCALA [Suspect]
     Active Substance: MEPOLIZUMAB
     Indication: Asthma
     Route: 058
     Dates: start: 20221130
  2. ADVAIR DISKU [Concomitant]
  3. ALBUTEROL [Concomitant]
     Active Substance: ALBUTEROL
  4. ALENDRONATE [Concomitant]
     Active Substance: ALENDRONATE SODIUM
  5. AZATHIOPRINE [Concomitant]
     Active Substance: AZATHIOPRINE
  6. AZELASTINE [Concomitant]
     Active Substance: AZELASTINE
  7. CLARITHROMYC [Concomitant]
  8. FLUTIC/SALME [Concomitant]
  9. FOSAMAX [Concomitant]
     Active Substance: ALENDRONATE SODIUM
  10. NASONEX [Concomitant]
     Active Substance: MOMETASONE FUROATE
  11. NUCALA [Concomitant]
     Active Substance: MEPOLIZUMAB

REACTIONS (1)
  - Tongue dysplasia [None]
